FAERS Safety Report 5596345-2 (Version None)
Quarter: 2008Q1

REPORT INFORMATION
  Report Type: 
  Country: None (occurrence: None)
  Receive Date: 20080118
  Receipt Date: 20080110
  Transmission Date: 20080703
  Serious: Yes (Hospitalization, Other)
  Sender: FDA-Public Use
  Company Number: JP-MERCK-0801USA03028

PATIENT
  Age: 1 Year
  Sex: Male

DRUGS (3)
  1. SINGULAIR [Suspect]
     Indication: ASTHMA
     Route: 048
     Dates: start: 20071216, end: 20071228
  2. MUCODYNE [Concomitant]
     Indication: ASTHMA
     Route: 048
     Dates: start: 20071216, end: 20071228
  3. PROCATEROL HYDROCHLORIDE [Concomitant]
     Route: 048
     Dates: start: 20071216, end: 20071228

REACTIONS (1)
  - THROMBOCYTOPENIA [None]
